FAERS Safety Report 18911748 (Version 8)
Quarter: 2025Q2

REPORT INFORMATION
  Report Type: Report from Study
  Country: US (occurrence: US)
  Receive Date: 20210218
  Receipt Date: 20250415
  Transmission Date: 20250716
  Serious: Yes (Other)
  Sender: TAKEDA
  Company Number: US-SHIRE-US202020943

PATIENT
  Age: 59 Year
  Sex: Female

DRUGS (2)
  1. HUMAN IMMUNOGLOBULIN G [Suspect]
     Active Substance: HUMAN IMMUNOGLOBULIN G
     Indication: Primary immunodeficiency syndrome
     Dosage: UNK UNK, Q3WEEKS
  2. HUMAN IMMUNOGLOBULIN G [Suspect]
     Active Substance: HUMAN IMMUNOGLOBULIN G
     Indication: Immunodeficiency common variable

REACTIONS (14)
  - Systemic lupus erythematosus [Unknown]
  - Barrett^s oesophagus [Unknown]
  - Retinal disorder [Unknown]
  - Asthma [Unknown]
  - Bronchitis [Unknown]
  - Adrenal disorder [Unknown]
  - Depressed mood [Unknown]
  - Feeling abnormal [Unknown]
  - Candida infection [Unknown]
  - Arthritis [Unknown]
  - Mobility decreased [Unknown]
  - Sinusitis [Unknown]
  - Back pain [Unknown]
  - Fatigue [Unknown]

NARRATIVE: CASE EVENT DATE: 20200101
